FAERS Safety Report 6182321-8 (Version None)
Quarter: 2009Q2

REPORT INFORMATION
  Report Type: 
  Country: None (occurrence: None)
  Receive Date: 20090505
  Receipt Date: 20090505
  Transmission Date: 20091009
  Serious: Yes (Hospitalization)
  Sender: FDA-Public Use
  Company Number: None

PATIENT
  Sex: Female
  Weight: 118 kg

DRUGS (1)
  1. ROCURONIUM BROMIDE [Suspect]
     Indication: INDUCTION OF ANAESTHESIA
     Dosage: 50 MG IV BOLUS
     Route: 040
     Dates: start: 20090323, end: 20090323

REACTIONS (4)
  - ANAESTHETIC COMPLICATION [None]
  - BRONCHOSPASM [None]
  - HYPOXIA [None]
  - WHEEZING [None]
